FAERS Safety Report 7158256-0 (Version None)
Quarter: 2010Q4

REPORT INFORMATION
  Report Type: 
  Country: None (occurrence: None)
  Receive Date: 20101214
  Receipt Date: 20100401
  Transmission Date: 20110411
  Serious: No
  Sender: FDA-Public Use
  Company Number: US-ASTRAZENECA-2010SE14400

PATIENT
  Age: 86 Year
  Sex: Female

DRUGS (5)
  1. CRESTOR [Suspect]
     Route: 048
  2. EYE DROPS [Concomitant]
     Indication: GLAUCOMA
  3. BLOOD PRESSURE MEDS [Concomitant]
  4. METFORMIN [Concomitant]
     Indication: TYPE 2 DIABETES MELLITUS
  5. XALATAN [Concomitant]
     Indication: GLAUCOMA
     Dosage: AT NIGHT

REACTIONS (3)
  - GLAUCOMA [None]
  - LABILE BLOOD PRESSURE [None]
  - TYPE 2 DIABETES MELLITUS [None]
